FAERS Safety Report 5428487-6 (Version None)
Quarter: 2007Q3

REPORT INFORMATION
  Report Type: 
  Country: None (occurrence: None)
  Receive Date: 20070731
  Receipt Date: 20070514
  Transmission Date: 20080115
  Serious: No
  Sender: FDA-Public Use
  Company Number: US200705000147

PATIENT
  Age: 69 Year
  Sex: Female
  Weight: 73.5 kg

DRUGS (7)
  1. BYETTA [Suspect]
     Dosage: 5 UG, 2/D, SUBCUTANEOUS; 10 UG, 2/D, SUBCUTANEOUS; 10 UG, DAILY (1/D), SUBCUTANEOUS; 10 UG, DAILY (1
     Route: 058
     Dates: start: 20060101, end: 20060201
  2. BYETTA [Suspect]
     Dosage: 5 UG, 2/D, SUBCUTANEOUS; 10 UG, 2/D, SUBCUTANEOUS; 10 UG, DAILY (1/D), SUBCUTANEOUS; 10 UG, DAILY (1
     Route: 058
     Dates: start: 20060201, end: 20070426
  3. BYETTA [Suspect]
     Dosage: 5 UG, 2/D, SUBCUTANEOUS; 10 UG, 2/D, SUBCUTANEOUS; 10 UG, DAILY (1/D), SUBCUTANEOUS; 10 UG, DAILY (1
     Route: 058
     Dates: start: 20070427, end: 20070428
  4. BYETTA [Suspect]
     Dosage: 5 UG, 2/D, SUBCUTANEOUS; 10 UG, 2/D, SUBCUTANEOUS; 10 UG, DAILY (1/D), SUBCUTANEOUS; 10 UG, DAILY (1
     Route: 058
     Dates: start: 20070501
  5. EXENATIDE PEN, DISPOSABLE DEVICE (EXENATIDE PEN) [Concomitant]
  6. METFORMIN HCL [Concomitant]
  7. AMARYL [Concomitant]

REACTIONS (4)
  - DISORIENTATION [None]
  - DIZZINESS [None]
  - VOMITING [None]
  - WEIGHT DECREASED [None]
